FAERS Safety Report 8431420-6 (Version None)
Quarter: 2012Q2

REPORT INFORMATION
  Report Type: 
  Country: None (occurrence: None)
  Receive Date: 20120605
  Receipt Date: 20120522
  Transmission Date: 20120825
  Serious: Yes (Other)
  Sender: FDA-Public Use
  Company Number: 2012P1031778

PATIENT
  Age: 19 Year
  Sex: Female

DRUGS (5)
  1. PROPOFOL [Concomitant]
  2. FENTANYL CITRATE [Suspect]
     Indication: PAIN
     Dosage: ;IV
     Route: 042
  3. FENTANYL CITRATE [Suspect]
     Indication: ANAESTHESIA
     Dosage: ;IV
     Route: 042
  4. KETOROLAC TROMETHAMINE [Concomitant]
  5. REMIFENTANIL [Concomitant]

REACTIONS (8)
  - HEART RATE DECREASED [None]
  - DYSPNOEA [None]
  - LIP SWELLING [None]
  - PAIN [None]
  - SWELLING FACE [None]
  - HYPERSENSITIVITY [None]
  - BLOOD PRESSURE DECREASED [None]
  - ERYTHEMA [None]
